FAERS Safety Report 4792419-4 (Version None)
Quarter: 2005Q4

REPORT INFORMATION
  Report Type: 
  Country: None (occurrence: None)
  Receive Date: 20051010
  Receipt Date: 20050215
  Transmission Date: 20060501
  Serious: Yes (Hospitalization, Other)
  Sender: FDA-Public Use
  Company Number: PHEH2005US02137

PATIENT
  Age: 56 Year
  Sex: Female

DRUGS (12)
  1. ZOMETA [Suspect]
     Indication: METASTASES TO BONE
     Dosage: 4 MG, QMO
     Dates: start: 20030327
  2. OXYCONTIN [Concomitant]
     Dosage: 40 MG, QID
  3. WELLBUTRIN [Concomitant]
  4. PAXIL [Concomitant]
  5. ALLEGRA [Concomitant]
  6. CALCIUM GLUCONATE [Concomitant]
  7. EXEMESTANE [Concomitant]
  8. AREDIA [Suspect]
     Indication: METASTASES TO BONE
     Dosage: 90 MG, QMO
     Dates: start: 20010328, end: 20020226
  9. VITAMIN B COMPLEX CAP [Concomitant]
     Dosage: 40 MG, QID
  10. MAXZIDE [Concomitant]
  11. GLUCOPHAGE [Concomitant]
  12. POTASSIUM [Concomitant]

REACTIONS (28)
  - ABSCESS [None]
  - ARTHRALGIA [None]
  - ARTHRITIS INFECTIVE [None]
  - BONE DISORDER [None]
  - BREAST CANCER METASTATIC [None]
  - BURSITIS [None]
  - CHEST PAIN [None]
  - COMPUTERISED TOMOGRAM ABNORMAL [None]
  - FAILURE OF IMPLANT [None]
  - FALL [None]
  - FEMUR FRACTURE [None]
  - FISTULA [None]
  - FRACTURE MALUNION [None]
  - HIP ARTHROPLASTY [None]
  - IMPAIRED HEALING [None]
  - MALIGNANT NEOPLASM PROGRESSION [None]
  - OPEN REDUCTION OF FRACTURE [None]
  - OSTEOARTHRITIS [None]
  - OSTEONECROSIS [None]
  - PATHOLOGICAL FRACTURE [None]
  - PERIODONTAL DISEASE [None]
  - PNEUMONIA [None]
  - POSTOPERATIVE INFECTION [None]
  - SECRETION DISCHARGE [None]
  - TOOTH EXTRACTION [None]
  - UPPER RESPIRATORY TRACT INFECTION [None]
  - WOUND DEBRIDEMENT [None]
  - WOUND INFECTION STAPHYLOCOCCAL [None]
